FAERS Safety Report 9296273 (Version 1)
Quarter: 2013Q2

REPORT INFORMATION
  Report Type: Spontaneous
  Country: US (occurrence: US)
  Receive Date: 20130517
  Receipt Date: 20130517
  Transmission Date: 20140414
  Serious: Yes (Death, Hospitalization, Other)
  Sender: FDA-Public Use
  Company Number: US-TEVA-405288USA

PATIENT
  Age: 52 Year
  Sex: Male

DRUGS (8)
  1. MYCOPHENOLATE MOFETIL [Suspect]
     Indication: IMMUNOSUPPRESSANT DRUG THERAPY
  2. VORICONAZOLE [Suspect]
     Indication: ASPERGILLUS INFECTION
  3. PREDNISONE [Suspect]
     Indication: IMMUNOSUPPRESSANT DRUG THERAPY
  4. TACROLIMUS [Suspect]
     Indication: IMMUNOSUPPRESSANT DRUG THERAPY
  5. VALGANCICLOVIR [Concomitant]
     Indication: PROPHYLAXIS
  6. COTRIMOXAZOLE [Concomitant]
     Indication: PROPHYLAXIS
  7. LEVOFLOXACIN [Concomitant]
  8. CASPOFUNGIN [Concomitant]
     Indication: ASPERGILLUS INFECTION

REACTIONS (6)
  - Aspergillus infection [Fatal]
  - Zygomycosis [Fatal]
  - Pulmonary mycosis [Fatal]
  - Pulmonary haemorrhage [Fatal]
  - Multi-organ failure [Fatal]
  - Myocardial infarction [Fatal]
